FAERS Safety Report 11996971 (Version 3)
Quarter: 2016Q1

REPORT INFORMATION
  Report Type: Report from Study
  Country: US (occurrence: US)
  Receive Date: 20160203
  Receipt Date: 20160310
  Transmission Date: 20160526
  Serious: Yes (Other)
  Sender: FDA-Public Use
  Company Number: US-AMGEN-USASL2016010075

PATIENT
  Age: 54 Year
  Sex: Female

DRUGS (3)
  1. TAZORAC [Concomitant]
     Active Substance: TAZAROTENE
     Dosage: UNK
  2. ENBREL [Suspect]
     Active Substance: ETANERCEPT
     Indication: PSORIATIC ARTHROPATHY
     Dosage: 50 MG, QWK
     Route: 058
     Dates: start: 20151230
  3. DICLOFEN                           /00372302/ [Concomitant]
     Active Substance: DICLOFENAC SODIUM
     Dosage: 50 MG, UNK

REACTIONS (12)
  - Arthralgia [Unknown]
  - Pain in extremity [Unknown]
  - Musculoskeletal pain [Unknown]
  - Injection site swelling [Recovered/Resolved]
  - Psoriatic arthropathy [Unknown]
  - Injection site erythema [Recovered/Resolved]
  - Injection site discolouration [Unknown]
  - Incorrect product storage [Unknown]
  - Feeling abnormal [Unknown]
  - Fatigue [Unknown]
  - Ocular hyperaemia [Unknown]
  - Drug effect decreased [Unknown]

NARRATIVE: CASE EVENT DATE: 201602
